FAERS Safety Report 20705996 (Version 2)
Quarter: 2022Q2

REPORT INFORMATION
  Report Type: Spontaneous
  Country: US (occurrence: US)
  Receive Date: 20220413
  Receipt Date: 20220516
  Transmission Date: 20220721
  Serious: Yes (Other)
  Sender: FDA-Public Use
  Company Number: US-GSKCCFUS-Case-01346999_AE-78111

PATIENT

DRUGS (6)
  1. SOTROVIMAB [Suspect]
     Active Substance: SOTROVIMAB
     Indication: Product used for unknown indication
     Dosage: 500 MG
     Dates: start: 20220320
  2. EPIPEN [Suspect]
     Active Substance: EPINEPHRINE
     Indication: Product used for unknown indication
     Dosage: UNK
     Route: 030
  3. PREDNISONE [Suspect]
     Active Substance: PREDNISONE
     Indication: Product used for unknown indication
     Dosage: UNK
     Route: 042
  4. CORTISONE (HYDROCORTISONE) [Suspect]
     Active Substance: HYDROCORTISONE
     Indication: Product used for unknown indication
     Dosage: UNK
     Route: 061
  5. BENADRYL [Suspect]
     Active Substance: DIPHENHYDRAMINE HYDROCHLORIDE
     Indication: Product used for unknown indication
     Route: 048
  6. SODIUM CHLORIDE [Concomitant]
     Active Substance: SODIUM CHLORIDE
     Indication: Product used for unknown indication
     Dosage: UNK

REACTIONS (9)
  - Erythema multiforme [Unknown]
  - Urticaria [Recovering/Resolving]
  - Disease recurrence [Recovering/Resolving]
  - Rash [Recovering/Resolving]
  - Rash erythematous [Unknown]
  - Rash pruritic [Recovering/Resolving]
  - Pharyngeal enanthema [Recovered/Resolved]
  - Aphonia [Recovered/Resolved]
  - Tongue eruption [Recovered/Resolved]

NARRATIVE: CASE EVENT DATE: 20220330
